FAERS Safety Report 9777926 (Version 1)
Quarter: 2013Q4

REPORT INFORMATION
  Report Type: Spontaneous
  Country: PH (occurrence: PH)
  Receive Date: 20131223
  Receipt Date: 20131223
  Transmission Date: 20140711
  Serious: Yes (Death, Other)
  Sender: FDA-Public Use
  Company Number: PH-009507513-1312PHL009368

PATIENT
  Age: 86 Year
  Sex: Male

DRUGS (1)
  1. HYZAAR [Suspect]
     Indication: ROUTINE HEALTH MAINTENANCE
     Dosage: 1 DF, QD
     Route: 048
     Dates: start: 20130117

REACTIONS (1)
  - Cardiac arrest [Fatal]
